FAERS Safety Report 10550849 (Version 1)
Quarter: 2014Q4

REPORT INFORMATION
  Report Type: Spontaneous
  Country: CA (occurrence: None)
  Receive Date: 20141027
  Receipt Date: 20141027
  Transmission Date: 20150529
  Serious: Yes (Other)
  Sender: FDA-Public Use
  Company Number: CA-017436

PATIENT
  Age: 77 Year
  Sex: Male

DRUGS (3)
  1. FENTANYL. [Concomitant]
     Active Substance: FENTANYL
  2. MORPHINE [Concomitant]
     Active Substance: MORPHINE
  3. FIRMAGON [Suspect]
     Active Substance: DEGARELIX ACETATE
     Indication: PROSTATE CANCER
     Dosage: 1X MONTH
     Route: 058

REACTIONS (8)
  - Nausea [None]
  - Arthralgia [None]
  - Vomiting [None]
  - Candida infection [None]
  - Pain [None]
  - Back pain [None]
  - Malaise [None]
  - Mobility decreased [None]

NARRATIVE: CASE EVENT DATE: 20140918
